FAERS Safety Report 24190758 (Version 1)
Quarter: 2024Q3

REPORT INFORMATION
  Report Type: Spontaneous
  Country: CA (occurrence: CA)
  Receive Date: 20240808
  Receipt Date: 20240808
  Transmission Date: 20241017
  Serious: Yes (Hospitalization, Other)
  Sender: PFIZER
  Company Number: CA-PFIZER INC-202400232331

PATIENT
  Age: 56 Year
  Sex: Male

DRUGS (4)
  1. XELJANZ [Suspect]
     Active Substance: TOFACITINIB CITRATE
     Indication: Myositis
     Dosage: UNK
     Route: 048
     Dates: end: 202212
  2. XELJANZ [Suspect]
     Active Substance: TOFACITINIB CITRATE
     Indication: Anti-melanoma differentiation-associated protein 5 antibody positive
     Dosage: 5 MG, 2X/DAY (SAMPLES)
     Route: 048
     Dates: start: 202401
  3. XELJANZ [Suspect]
     Active Substance: TOFACITINIB CITRATE
     Indication: Skin disorder
  4. XELJANZ [Suspect]
     Active Substance: TOFACITINIB CITRATE
     Indication: Polyarthritis

REACTIONS (6)
  - Myocarditis [Unknown]
  - Interstitial lung disease [Unknown]
  - Pulmonary mass [Unknown]
  - Lung opacity [Unknown]
  - Drug effective for unapproved indication [Unknown]
  - Off label use [Unknown]

NARRATIVE: CASE EVENT DATE: 20211001
